FAERS Safety Report 10098765 (Version 2)
Quarter: 2014Q2

REPORT INFORMATION
  Report Type: Spontaneous
  Country: JP (occurrence: JP)
  Receive Date: 20140423
  Receipt Date: 20140522
  Transmission Date: 20141212
  Serious: No
  Sender: FDA-Public Use
  Company Number: JP-SA-2014SA051502

PATIENT
  Age: 65 Year
  Sex: Male

DRUGS (5)
  1. DELLEGRA [Suspect]
     Indication: RHINITIS ALLERGIC
     Dosage: 4 TABLETS/DAY
     Route: 048
     Dates: start: 20140328, end: 20140331
  2. DELLEGRA [Suspect]
     Indication: NASAL CONGESTION
     Dosage: 4 TABLETS/DAY
     Route: 048
     Dates: start: 20140328, end: 20140331
  3. FASTIC [Concomitant]
     Indication: DIABETES MELLITUS
     Route: 048
     Dates: start: 20061114
  4. AMLODIPINE BESILATE [Concomitant]
     Indication: HYPERTENSION
     Route: 048
     Dates: start: 20110620
  5. NASONEX [Concomitant]
     Route: 045
     Dates: start: 20140328

REACTIONS (1)
  - Dysuria [Recovered/Resolved]
